FAERS Safety Report 6607659-9 (Version None)
Quarter: 2010Q1

REPORT INFORMATION
  Report Type: 
  Country: None (occurrence: None)
  Receive Date: 20100301
  Receipt Date: 20100215
  Transmission Date: 20100710
  Serious: Yes (Disabling)
  Sender: FDA-Public Use
  Company Number: PHHY2010IE09402

PATIENT
  Age: 68 Year
  Sex: Male

DRUGS (1)
  1. CATAFLAM [Suspect]
     Indication: ARTHRITIS
     Dosage: 50 MG
     Route: 048
     Dates: start: 20091215, end: 20100119

REACTIONS (4)
  - DIZZINESS [None]
  - HEADACHE [None]
  - NERVOUSNESS [None]
  - SLEEP DISORDER [None]
